FAERS Safety Report 7251095-1 (Version None)
Quarter: 2011Q1

REPORT INFORMATION
  Report Type: 
  Country: None (occurrence: None)
  Receive Date: 20110128
  Receipt Date: 20110119
  Transmission Date: 20110831
  Serious: Yes (Hospitalization, Disabling)
  Sender: FDA-Public Use
  Company Number: JP-MERCK-1101USA02691

PATIENT
  Age: 70 Year
  Sex: Female

DRUGS (11)
  1. JANUVIA [Suspect]
     Route: 048
     Dates: start: 20110112, end: 20110117
  2. BANAN [Concomitant]
     Route: 048
     Dates: start: 20110114
  3. AMARYL [Concomitant]
     Route: 048
  4. RIZE [Concomitant]
     Route: 048
  5. ARTIST [Concomitant]
     Route: 048
  6. NATRIX [Concomitant]
     Route: 048
     Dates: start: 20100101
  7. EPADEL [Concomitant]
     Route: 048
  8. BEZATOL SR [Concomitant]
     Route: 048
  9. GRANDAXIN [Concomitant]
     Route: 048
  10. BLOPRESS [Concomitant]
     Route: 048
  11. CEPHADOL [Concomitant]
     Route: 048
     Dates: start: 20110112

REACTIONS (1)
  - HYPONATRAEMIA [None]
